FAERS Safety Report 15448083 (Version 2)
Quarter: 2018Q4

REPORT INFORMATION
  Report Type: Report from Study
  Country: None (occurrence: CO)
  Receive Date: 20180928
  Receipt Date: 20181101
  Transmission Date: 20190204
  Serious: Yes (Other)
  Sender: FDA-Public Use
  Company Number: CO-ABBVIE-18K-036-2502136-00

PATIENT
  Age: 38 Year
  Sex: Male
  Weight: 75 kg

DRUGS (1)
  1. HUMIRA [Suspect]
     Active Substance: ADALIMUMAB
     Indication: ANKYLOSING SPONDYLITIS
     Route: 058
     Dates: start: 20171114, end: 20180517

REACTIONS (3)
  - Gastrointestinal inflammation [Unknown]
  - Crohn^s disease [Unknown]
  - Colon neoplasm [Recovering/Resolving]

NARRATIVE: CASE EVENT DATE: 201807
